FAERS Safety Report 9264121 (Version 1)
Quarter: 2013Q2

REPORT INFORMATION
  Report Type: Spontaneous
  Country: JP (occurrence: JP)
  Receive Date: 20130430
  Receipt Date: 20130430
  Transmission Date: 20140414
  Serious: Yes (Hospitalization)
  Sender: FDA-Public Use
  Company Number: JP-ASTRAZENECA-2013SE29341

PATIENT
  Age: 70 Year
  Sex: 0

DRUGS (1)
  1. MEROPEN [Suspect]
     Indication: INFECTIOUS PLEURAL EFFUSION
     Route: 042

REACTIONS (2)
  - Aspartate aminotransferase increased [Not Recovered/Not Resolved]
  - Alanine aminotransferase increased [Not Recovered/Not Resolved]
